FAERS Safety Report 12845594 (Version 2)
Quarter: 2016Q4

REPORT INFORMATION
  Report Type: Spontaneous
  Country: US (occurrence: US)
  Receive Date: 20161013
  Receipt Date: 20161124
  Transmission Date: 20170207
  Serious: No
  Sender: FDA-Public Use
  Company Number: US-PFIZER INC-2016473322

PATIENT
  Age: 54 Year
  Sex: Female

DRUGS (9)
  1. AMITIZA [Concomitant]
     Active Substance: LUBIPROSTONE
     Dosage: 8 UG, AS NEEDED (2X3 DAILY)
  2. D3 50 [Concomitant]
     Dosage: 50000 IU, WEEKLY
  3. TIZANIDINE HCL [Concomitant]
     Active Substance: TIZANIDINE HYDROCHLORIDE
     Dosage: 4 MG, 1X/DAY (AT BEDTIME)
  4. EMBEDA [Suspect]
     Active Substance: MORPHINE SULFATE\NALTREXONE HYDROCHLORIDE
     Indication: COMPLEX REGIONAL PAIN SYNDROME
     Dosage: 25 MG, 1X/DAY
     Dates: start: 20161008, end: 20161017
  5. MEDROXYPROGESTERONE [Concomitant]
     Active Substance: MEDROXYPROGESTERONE
     Dosage: 2.5 MG, 1X/DAY (IN MORNING)
  6. BREO ELLIPTA [Concomitant]
     Active Substance: FLUTICASONE FUROATE\VILANTEROL TRIFENATATE
     Dosage: UNK UNK, 1X/DAY (FLUTICASONE FUROATE 100 MCG VILANTEROL TRIFENATATE 25 MCG, DAILY)
  7. LYRICA [Concomitant]
     Active Substance: PREGABALIN
     Dosage: 100 MG, 3X/DAY
  8. LYRICA [Concomitant]
     Active Substance: PREGABALIN
     Dosage: 100 MG, 2X/DAY
  9. ESTRADIOL. [Concomitant]
     Active Substance: ESTRADIOL
     Dosage: 1 MG, 1X/DAY (IN MORNING)

REACTIONS (8)
  - Fatigue [Recovered/Resolved]
  - Somnolence [Unknown]
  - Depression [Unknown]
  - Drug ineffective [Unknown]
  - Dizziness [Unknown]
  - Feeling abnormal [Unknown]
  - Activities of daily living impaired [Recovered/Resolved]
  - Disturbance in attention [Recovered/Resolved]

NARRATIVE: CASE EVENT DATE: 20161008
